FAERS Safety Report 7228227-4 (Version None)
Quarter: 2011Q1

REPORT INFORMATION
  Report Type: 
  Country: None (occurrence: None)
  Receive Date: 20110114
  Receipt Date: 20110114
  Transmission Date: 20110831
  Serious: Yes (Hospitalization)
  Sender: FDA-Public Use
  Company Number: FR-KINGPHARMUSA00001-K201001027

PATIENT
  Age: 80 Year
  Sex: Male

DRUGS (14)
  1. TIOTROPIUM BROMIDE [Concomitant]
     Dosage: UNK
  2. FUROSEMIDE [Concomitant]
     Dosage: 40 MG, UNK
  3. PREVISCAN [Concomitant]
     Dosage: 20 MG, UNK
  4. CLARITIN [Concomitant]
     Dosage: 10 MG, UNK
  5. CARDENSIEL [Suspect]
     Dosage: 7.5 MG, QD
  6. ALTACE [Suspect]
     Indication: HYPERTENSION
     Dosage: 5 MG, QD
     Route: 048
  7. FLUTICASONE W/SALMETEROL [Concomitant]
     Dosage: 250 MCG, UNK
  8. SPIRONOLACTONE [Suspect]
     Indication: CARDIAC FAILURE
     Dosage: 25 MG, QD
     Route: 048
     Dates: end: 20100708
  9. CARDENSIEL [Suspect]
     Indication: CARDIAC FAILURE
     Dosage: 2.5 MG, QD
     Route: 048
     Dates: start: 20100401, end: 20100101
  10. PREVISCAN [Concomitant]
     Dosage: UNK, 3/4 TABLET QD
  11. IVABRADINE [Suspect]
     Indication: ANGINA PECTORIS
     Dosage: 5 MG, BID
     Route: 048
     Dates: start: 20100401, end: 20100708
  12. LACTULOSE [Concomitant]
     Dosage: 2 DF, UNK
  13. DOLIPRANE [Concomitant]
     Dosage: UNK
  14. TAHOR [Concomitant]
     Dosage: 20 MG, UNK

REACTIONS (6)
  - ATRIOVENTRICULAR BLOCK COMPLETE [None]
  - DYSPNOEA [None]
  - CHEST PAIN [None]
  - RENAL FAILURE [None]
  - HYPERKALAEMIA [None]
  - FATIGUE [None]
